FAERS Safety Report 21541195 (Version 1)
Quarter: 2022Q4

REPORT INFORMATION
  Report Type: Spontaneous
  Country: US (occurrence: None)
  Receive Date: 20221101
  Receipt Date: 20221101
  Transmission Date: 20230113
  Serious: Yes (Hospitalization)
  Sender: FDA-Public Use
  Company Number: None

PATIENT
  Age: 71 Year
  Sex: Male
  Weight: 100.38 kg

DRUGS (23)
  1. ABIRATERONE [Suspect]
     Active Substance: ABIRATERONE
     Indication: Prostate cancer
     Dosage: FREQUENCY : DAILY;?
     Route: 048
     Dates: start: 202206
  2. ABIRATERONE [Concomitant]
     Active Substance: ABIRATERONE
  3. ASPIRIN [Concomitant]
     Active Substance: ASPIRIN
  4. ATORVASTATIN [Concomitant]
     Active Substance: ATORVASTATIN
  5. BUSPIRONE [Concomitant]
     Active Substance: BUSPIRONE HYDROCHLORIDE
  6. DICLOFENAC [Concomitant]
     Active Substance: DICLOFENAC
  7. DOXEPIN [Concomitant]
     Active Substance: DOXEPIN
  8. DULOXETINE [Concomitant]
     Active Substance: DULOXETINE
  9. FINASTERIDE [Concomitant]
     Active Substance: FINASTERIDE
  10. FISH OIL [Concomitant]
     Active Substance: FISH OIL
  11. GABAPENTIN [Concomitant]
     Active Substance: GABAPENTIN
  12. MELATONIN [Concomitant]
     Active Substance: MELATONIN
  13. MIRTAZAPINE [Concomitant]
     Active Substance: MIRTAZAPINE
  14. MORPHINE SULFATE [Concomitant]
     Active Substance: MORPHINE SULFATE
  15. VITAMINS [Concomitant]
     Active Substance: VITAMINS
  16. PREDNISONE [Concomitant]
     Active Substance: PREDNISONE
  17. REQUIP [Concomitant]
     Active Substance: ROPINIROLE HYDROCHLORIDE
  18. ROPNROLE [Concomitant]
  19. SERTRALINE [Concomitant]
     Active Substance: SERTRALINE HYDROCHLORIDE
  20. TAMSULOSIN [Concomitant]
     Active Substance: TAMSULOSIN
  21. TRAZODONE [Concomitant]
     Active Substance: TRAZODONE HYDROCHLORIDE
  22. VALERIAN [Concomitant]
     Active Substance: VALERIAN
  23. WELLBUTRIN XL [Concomitant]
     Active Substance: BUPROPION HYDROCHLORIDE

REACTIONS (1)
  - Suicidal ideation [None]
